FAERS Safety Report 5465536-3 (Version None)
Quarter: 2007Q3

REPORT INFORMATION
  Report Type: 
  Country: None (occurrence: None)
  Receive Date: 20070924
  Receipt Date: 19970821
  Transmission Date: 20080115
  Serious: Yes (Other)
  Sender: FDA-Public Use
  Company Number: DE-PFIZER INC-2006118903

PATIENT
  Sex: Male

DRUGS (3)
  1. IRINOTECAN HCL [Suspect]
     Indication: COLORECTAL CANCER
     Dosage: DAILY DOSE:500MG
     Route: 042
     Dates: start: 19970805, end: 19970805
  2. METOCLOPRAMIDE [Concomitant]
     Dosage: DAILY DOSE:90DROP-FREQ:EVERY DAY
  3. PREDNISONE [Concomitant]
     Dosage: DAILY DOSE:25MG-FREQ:EVERY DAY
     Dates: start: 19970401

REACTIONS (4)
  - ANAL FISSURE [None]
  - BLOOD CREATININE INCREASED [None]
  - LEUKOPENIA [None]
  - PROCTITIS [None]
